FAERS Safety Report 9340628 (Version 2)
Quarter: 2013Q4

REPORT INFORMATION
  Report Type: Spontaneous
  Country: JP (occurrence: JP)
  Receive Date: 20130610
  Receipt Date: 20131004
  Transmission Date: 20140711
  Serious: Yes (Hospitalization)
  Sender: FDA-Public Use
  Company Number: JP-ASTRAZENECA-2013SE38343

PATIENT
  Age: 67 Year
  Sex: Male
  Weight: 75 kg

DRUGS (13)
  1. NEXIUM [Suspect]
     Indication: PROPHYLAXIS AGAINST GASTROINTESTINAL ULCER
     Route: 048
     Dates: start: 20130327, end: 20130514
  2. ZOSYN [Suspect]
     Indication: INFECTIVE SPONDYLITIS
     Dosage: DOSE UNKNOWN
     Route: 065
     Dates: start: 20130409, end: 20130428
  3. LYRICA [Suspect]
     Indication: SPINAL CORD INJURY CERVICAL
     Route: 048
     Dates: start: 20130325, end: 20130514
  4. SENNOSIDE [Concomitant]
     Indication: CONSTIPATION
     Dosage: 24 MG AT THE TIME OF CONSTIPATION
     Route: 048
     Dates: start: 20130329
  5. MAGMITT [Concomitant]
     Indication: CONSTIPATION
     Route: 048
     Dates: start: 20130405
  6. REBAMIPIDE OD [Concomitant]
     Indication: PROPHYLAXIS AGAINST GASTROINTESTINAL ULCER
     Route: 048
     Dates: start: 20130327, end: 20130407
  7. REBAMIPIDE OD [Concomitant]
     Indication: PROPHYLAXIS AGAINST GASTROINTESTINAL ULCER
     Dosage: 100 MG AS REQUIRED
     Route: 048
     Dates: start: 20130408
  8. LOXOPROFEN [Concomitant]
     Indication: SPINAL CORD INJURY CERVICAL
     Route: 048
     Dates: start: 20130327, end: 20130407
  9. LOXOPROFEN [Concomitant]
     Indication: SPINAL CORD INJURY CERVICAL
     Dosage: 60 MG AS REQUIRED
     Route: 048
     Dates: start: 20130408, end: 20130428
  10. ALLOPURINOL [Concomitant]
     Indication: HYPERURICAEMIA
     Route: 048
     Dates: start: 20130214, end: 20130503
  11. TRIAZOLAM [Concomitant]
     Indication: INSOMNIA
     Dosage: 0.125 MG AT THE TIME OF SLEEP LOSS
     Route: 048
     Dates: start: 20130401
  12. LECICARBON [Concomitant]
     Indication: CONSTIPATION
     Dosage: 2 DF AT THE TIME OF CONSTIPATION
     Route: 054
     Dates: start: 20130330
  13. FULRUBAN [Concomitant]
     Indication: SPINAL CORD INJURY CERVICAL
     Route: 062
     Dates: start: 20130401

REACTIONS (2)
  - Infective spondylitis [Recovered/Resolved]
  - Pyrexia [Recovered/Resolved]
